FAERS Safety Report 9526193 (Version 1)
Quarter: 2013Q3

REPORT INFORMATION
  Report Type: Report from Study
  Country: AR (occurrence: AR)
  Receive Date: 20130916
  Receipt Date: 20130916
  Transmission Date: 20140515
  Serious: Yes (Hospitalization)
  Sender: FDA-Public Use
  Company Number: PHHY2013AR102440

PATIENT
  Age: 68 Year
  Sex: Female

DRUGS (1)
  1. DIOVAN [Suspect]
     Indication: BLOOD PRESSURE ABNORMAL
     Dosage: 160 MG, DAILY
     Route: 048

REACTIONS (6)
  - Blood glucose increased [Recovering/Resolving]
  - Blood pressure increased [Recovering/Resolving]
  - Disturbance in attention [Unknown]
  - Nervousness [Unknown]
  - Anxiety [Unknown]
  - Cardiac disorder [Unknown]
